FAERS Safety Report 10484242 (Version 2)
Quarter: 2014Q3

REPORT INFORMATION
  Report Type: Report from Study
  Country: DE (occurrence: DE)
  Receive Date: 20140930
  Receipt Date: 20140930
  Transmission Date: 20150326
  Serious: Yes (Hospitalization)
  Sender: FDA-Public Use
  Company Number: PHHO2014DE010713

PATIENT
  Age: 61 Year
  Sex: Female
  Weight: 41 kg

DRUGS (5)
  1. CELLCEPT [Concomitant]
     Active Substance: MYCOPHENOLATE MOFETIL\MYCOPHENOLATE MOFETIL HYDROCHLORIDE
     Indication: LUNG TRANSPLANT
     Dosage: 250 UG, BID (IN THE MORNING AND EVENING)
     Route: 048
     Dates: start: 20140311
  2. PREDNISOLON [Concomitant]
     Active Substance: PREDNISOLONE
     Indication: LUNG TRANSPLANT
     Dosage: 5 UG, QD (IN THE MORNING)
     Dates: start: 20140311
  3. TACROLIMUS. [Concomitant]
     Active Substance: TACROLIMUS
     Indication: LUNG TRANSPLANT
     Dosage: 2X 0.511 X 0 UG, 0.5 IN THE MORNING 3TH DAY NOTHING
     Route: 048
     Dates: start: 20140311
  4. TORSEMIDE. [Concomitant]
     Active Substance: TORSEMIDE
     Dosage: 5 MG, BID (1-1-0)
     Dates: start: 201407
  5. EVEROLIMUS [Suspect]
     Active Substance: EVEROLIMUS
     Indication: LUNG TRANSPLANT
     Dosage: 0.2 UG, QD (IN THE MORNING)
     Route: 048
     Dates: start: 20140627

REACTIONS (2)
  - Oedema peripheral [Recovered/Resolved]
  - Localised oedema [Recovered/Resolved]

NARRATIVE: CASE EVENT DATE: 20140801
